FAERS Safety Report 16826939 (Version 1)
Quarter: 2019Q3

REPORT INFORMATION
  Report Type: Spontaneous
  Country: DE (occurrence: DE)
  Receive Date: 20190919
  Receipt Date: 20190919
  Transmission Date: 20191005
  Serious: Yes (Other)
  Sender: FDA-Public Use
  Company Number: DE-MYLANLABS-2019M1086553

PATIENT
  Age: 15 Year
  Sex: Female
  Weight: 29 kg

DRUGS (4)
  1. APYDAN EXTENT [Suspect]
     Active Substance: OXCARBAZEPINE
     Indication: EPILEPSY
     Dosage: 300-0-300, ORAL/PEG
     Route: 048
     Dates: start: 2019
  2. ORFIRIL [Suspect]
     Active Substance: VALPROATE SODIUM
     Indication: EPILEPSY
     Dosage: ORAL/PEG
     Route: 048
     Dates: start: 201510, end: 201802
  3. LEVETIRACETAM. [Concomitant]
     Active Substance: LEVETIRACETAM
     Indication: EPILEPSY
     Dosage: 750-0-750
  4. LAMOTRIGINE. [Suspect]
     Active Substance: LAMOTRIGINE
     Indication: EPILEPSY
     Dosage: UNK

REACTIONS (6)
  - Respiration abnormal [Recovered/Resolved]
  - Drug ineffective [Unknown]
  - Screaming [Unknown]
  - Salivary hypersecretion [Recovered/Resolved]
  - Vomiting [Recovering/Resolving]
  - Nausea [Recovering/Resolving]

NARRATIVE: CASE EVENT DATE: 20190129
